FAERS Safety Report 10005301 (Version 1)
Quarter: 2014Q1

REPORT INFORMATION
  Report Type: Spontaneous
  Country: US (occurrence: US)
  Receive Date: 20140312
  Receipt Date: 20140312
  Transmission Date: 20141002
  Serious: No
  Sender: FDA-Public Use
  Company Number: US-BAXTER-2014BAX011152

PATIENT
  Sex: Female

DRUGS (1)
  1. TISSEEL VH S/D [Suspect]
     Indication: SURGERY
     Route: 061

REACTIONS (1)
  - Adhesion [Unknown]
